FAERS Safety Report 7540630-1 (Version None)
Quarter: 2011Q2

REPORT INFORMATION
  Report Type: 
  Country: None (occurrence: None)
  Receive Date: 20110603
  Receipt Date: 20110523
  Transmission Date: 20111010
  Serious: Yes (Other)
  Sender: FDA-Public Use
  Company Number: 2011P1006732

PATIENT
  Age: 41 Year
  Sex: Female

DRUGS (3)
  1. EXCEDRIN MIGRAINE (ACETAMINOPHEN, ACETYLSALICYLIC ACID, AND CAFFEINE) [Suspect]
     Dosage: 3 PILLS; PRN;
     Dates: end: 20101101
  2. OXYCODONE HYDROCHLORIDE [Suspect]
  3. VICODIN [Suspect]

REACTIONS (3)
  - MYOCARDIAL INFARCTION [None]
  - BLOOD PRESSURE INCREASED [None]
  - CEREBRAL CYST [None]
